FAERS Safety Report 24745223 (Version 2)
Quarter: 2024Q4

REPORT INFORMATION
  Report Type: Spontaneous
  Country: ES (occurrence: ES)
  Receive Date: 20241217
  Receipt Date: 20241224
  Transmission Date: 20250115
  Serious: Yes (Other)
  Sender: ALEXION PHARMACEUTICALS
  Company Number: ES-AstraZeneca-CH-00721705AP

PATIENT
  Age: 67 Year

DRUGS (4)
  1. BUDESONIDE\FORMOTEROL\GLYCOPYRRONIUM [Suspect]
     Active Substance: BUDESONIDE\FORMOTEROL\GLYCOPYRRONIUM
     Indication: Asthma
     Dosage: 5 MICROGRAM, BID
  2. BUDESONIDE\FORMOTEROL\GLYCOPYRRONIUM [Suspect]
     Active Substance: BUDESONIDE\FORMOTEROL\GLYCOPYRRONIUM
     Dosage: 5 MICROGRAM, BID
  3. BUDESONIDE\FORMOTEROL\GLYCOPYRRONIUM [Suspect]
     Active Substance: BUDESONIDE\FORMOTEROL\GLYCOPYRRONIUM
     Dosage: 5 MICROGRAM, BID
  4. BUDESONIDE\FORMOTEROL\GLYCOPYRRONIUM [Suspect]
     Active Substance: BUDESONIDE\FORMOTEROL\GLYCOPYRRONIUM
     Dosage: 5 MICROGRAM, BID

REACTIONS (7)
  - Chest discomfort [Unknown]
  - Cough [Unknown]
  - Device malfunction [Unknown]
  - Product dose omission issue [Unknown]
  - Intentional product misuse [Unknown]
  - Drug ineffective [Unknown]
  - Device delivery system issue [Unknown]
